FAERS Safety Report 7504150-2 (Version None)
Quarter: 2011Q2

REPORT INFORMATION
  Report Type: 
  Country: None (occurrence: None)
  Receive Date: 20110525
  Receipt Date: 20110513
  Transmission Date: 20111010
  Serious: No
  Sender: FDA-Public Use
  Company Number: US-ELI_LILLY_AND_COMPANY-US201101004976

PATIENT
  Sex: Male
  Weight: 84 kg

DRUGS (8)
  1. VALIUM [Concomitant]
     Route: 065
  2. CALCIUM CARBONATE [Concomitant]
     Dosage: 2 DF, QD
  3. FORTEO [Suspect]
     Dosage: 20 UG, QD
     Route: 058
  4. NASACORT AQ [Concomitant]
     Route: 065
  5. COZAAR [Concomitant]
     Route: 065
  6. FORTEO [Suspect]
     Dosage: 20 UG, QD
     Route: 058
  7. FORTEO [Suspect]
     Indication: OSTEOPOROSIS
     Dosage: 20 UG, DAILY (1/D)
     Route: 058
     Dates: start: 20101221
  8. CALCIUM CARBONATE [Concomitant]
     Dosage: 3 DF, QD

REACTIONS (6)
  - ABNORMAL DREAMS [None]
  - PYREXIA [None]
  - BLOOD CALCIUM INCREASED [None]
  - URINE OUTPUT INCREASED [None]
  - CHROMATURIA [None]
  - NAUSEA [None]
